FAERS Safety Report 4473547-X (Version None)
Quarter: 2004Q4

REPORT INFORMATION
  Report Type: 
  Country: None (occurrence: None)
  Receive Date: 20041013
  Receipt Date: 20041006
  Transmission Date: 20050328
  Serious: Yes (Other)
  Sender: FDA-Public Use
  Company Number: JP-MERCK-0410USA01066

PATIENT
  Age: 70 Year
  Sex: Male

DRUGS (5)
  1. PULMICORT [Concomitant]
     Route: 055
  2. GASTER [Concomitant]
     Route: 065
  3. ATROVENT [Concomitant]
     Route: 055
  4. SINGULAIR [Suspect]
     Route: 048
  5. SLO-BID [Concomitant]
     Route: 048

REACTIONS (1)
  - ALLERGIC GRANULOMATOUS ANGIITIS [None]
